FAERS Safety Report 6667064-6 (Version None)
Quarter: 2010Q2

REPORT INFORMATION
  Report Type: 
  Country: None (occurrence: None)
  Receive Date: 20100405
  Receipt Date: 20100331
  Transmission Date: 20101027
  Serious: Yes (Hospitalization)
  Sender: FDA-Public Use
  Company Number: US-ASTRAZENECA-2010SE14277

PATIENT
  Age: 83 Year
  Sex: Female

DRUGS (2)
  1. SEROQUEL XR [Suspect]
     Indication: AGITATION
     Route: 048
     Dates: start: 20090501
  2. SEROQUEL XR [Suspect]
     Route: 048
     Dates: end: 20090501

REACTIONS (4)
  - FEELING ABNORMAL [None]
  - HANGOVER [None]
  - URINARY TRACT INFECTION [None]
  - WRONG TECHNIQUE IN DRUG USAGE PROCESS [None]
